FAERS Safety Report 18141445 (Version 1)
Quarter: 2020Q3

REPORT INFORMATION
  Report Type: Spontaneous
  Country: US (occurrence: US)
  Receive Date: 20200812
  Receipt Date: 20200812
  Transmission Date: 20201103
  Serious: No
  Sender: FDA-Public Use
  Company Number: US-ASTRAZENECA-2019SF35651

PATIENT
  Age: 859 Month
  Sex: Female
  Weight: 63.5 kg

DRUGS (2)
  1. FASENRA [Suspect]
     Active Substance: BENRALIZUMAB
     Indication: ASTHMA
     Dosage: 30MG FIRST THREE INJECTIONONCE EVERY 4 WEEKS, THEN ONCE AT 8 WEEKS THEN SHE STOPPED
     Route: 058
     Dates: start: 20191008, end: 20200128
  2. PREDNISONE. [Concomitant]
     Active Substance: PREDNISONE

REACTIONS (2)
  - Paraesthesia oral [Recovered/Resolved]
  - Drug ineffective [Unknown]

NARRATIVE: CASE EVENT DATE: 201910
